FAERS Safety Report 23895544 (Version 1)
Quarter: 2024Q2

REPORT INFORMATION
  Report Type: Spontaneous
  Country: US (occurrence: None)
  Receive Date: 20240523
  Receipt Date: 20240523
  Transmission Date: 20240716
  Serious: No
  Sender: FDA-Public Use
  Company Number: None

PATIENT
  Age: 31 Year
  Sex: Female
  Weight: 78.3 kg

DRUGS (4)
  1. SKYRIZI [Suspect]
     Active Substance: RISANKIZUMAB-RZAA
     Indication: Crohn^s disease
     Dates: start: 20240327, end: 20240523
  2. ZOLOFT [Concomitant]
     Active Substance: SERTRALINE HYDROCHLORIDE
  3. TRAZODONE [Concomitant]
     Active Substance: TRAZODONE HYDROCHLORIDE
  4. BUSPIRONE [Concomitant]

REACTIONS (9)
  - Anxiety [None]
  - Depression [None]
  - Crying [None]
  - Feeling of despair [None]
  - Thinking abnormal [None]
  - Paraesthesia [None]
  - Decreased appetite [None]
  - Nausea [None]
  - Eating disorder [None]

NARRATIVE: CASE EVENT DATE: 20240414
